FAERS Safety Report 10061461 (Version 1)
Quarter: 2014Q2

REPORT INFORMATION
  Report Type: Spontaneous
  Country: FR (occurrence: FR)
  Receive Date: 20140407
  Receipt Date: 20140407
  Transmission Date: 20141212
  Serious: Yes (Congenital Anomaly)
  Sender: FDA-Public Use
  Company Number: FR-JNJFOC-20140318175

PATIENT
  Age: 0 Day
  Sex: Female
  Weight: 2.74 kg

DRUGS (4)
  1. EPITOMAX [Suspect]
     Indication: PRODUCT USED FOR UNKNOWN INDICATION
     Route: 064
     Dates: end: 20131202
  2. LAMICTAL [Suspect]
     Indication: PRODUCT USED FOR UNKNOWN INDICATION
     Route: 064
     Dates: end: 20131202
  3. URBANYL [Suspect]
     Indication: PRODUCT USED FOR UNKNOWN INDICATION
     Route: 064
     Dates: end: 20131202
  4. KEPPRA [Suspect]
     Indication: EPILEPSY
     Route: 064
     Dates: end: 20131202

REACTIONS (5)
  - Microcephaly [Not Recovered/Not Resolved]
  - Foetal malnutrition [Not Recovered/Not Resolved]
  - Visual impairment [Not Recovered/Not Resolved]
  - Hearing impaired [Not Recovered/Not Resolved]
  - Foetal exposure during pregnancy [Recovered/Resolved]
